FAERS Safety Report 6927742-8 (Version None)
Quarter: 2010Q3

REPORT INFORMATION
  Report Type: 
  Country: None (occurrence: None)
  Receive Date: 20100817
  Receipt Date: 20100811
  Transmission Date: 20110219
  Serious: Yes (Hospitalization)
  Sender: FDA-Public Use
  Company Number: US-BAYER-201018947BCC

PATIENT
  Age: 42 Year
  Sex: Female
  Weight: 59 kg

DRUGS (1)
  1. ALEVE (CAPLET) [Suspect]
     Indication: PAIN IN EXTREMITY
     Dosage: TOTAL DAILY DOSE: 220 MG  UNIT DOSE: 220 MG
     Route: 048
     Dates: start: 20100507

REACTIONS (4)
  - FACE OEDEMA [None]
  - HYPERSENSITIVITY [None]
  - SKIN REACTION [None]
  - WHEEZING [None]
